FAERS Safety Report 21965551 (Version 2)
Quarter: 2023Q1

REPORT INFORMATION
  Report Type: Report from Study
  Country: US (occurrence: None)
  Receive Date: 20230208
  Receipt Date: 20230329
  Transmission Date: 20230418
  Serious: Yes (Hospitalization)
  Sender: FDA-Public Use
  Company Number: US-ROCHE-3277897

PATIENT
  Age: 70 Year
  Sex: Female
  Weight: 53.4 kg

DRUGS (16)
  1. TOCILIZUMAB [Suspect]
     Active Substance: TOCILIZUMAB
     Indication: Plasma cell myeloma
     Route: 042
     Dates: start: 20221122
  2. CEVOSTAMAB [Suspect]
     Active Substance: CEVOSTAMAB
     Indication: Plasma cell myeloma
     Dosage: START DATE OF MOST RECENT DOSE OF STUDY DRUG?PRIOR TO SAE?11-JAN-2023 11:06 AM?END DATE OF MOST RECE
     Route: 042
     Dates: start: 20221117
  3. ALLOPURINOL [Concomitant]
     Active Substance: ALLOPURINOL
     Route: 048
  4. LIDOCAINE [Concomitant]
     Active Substance: LIDOCAINE
     Indication: Pain
     Route: 061
  5. METHOCARBAMOL [Concomitant]
     Active Substance: METHOCARBAMOL
     Indication: Muscle relaxant therapy
     Route: 048
  6. MORPHINE [Concomitant]
     Active Substance: MORPHINE
     Route: 048
  7. PANTOPRAZOLE [Concomitant]
     Active Substance: PANTOPRAZOLE
     Route: 048
  8. PREGABALIN [Concomitant]
     Active Substance: PREGABALIN
     Indication: Anxiety
     Route: 048
  9. SENNA LEAF [Concomitant]
     Active Substance: SENNA LEAF
     Indication: Constipation
     Route: 048
  10. ACYCLOVIR [Concomitant]
     Active Substance: ACYCLOVIR
     Route: 048
  11. AMLODIPINE [Concomitant]
     Active Substance: AMLODIPINE BESYLATE
     Indication: Blood pressure measurement
     Route: 048
  12. DIPHENOXYLATE [Concomitant]
     Active Substance: DIPHENOXYLATE
     Indication: Diarrhoea
     Route: 048
  13. ATROPINE [Concomitant]
     Active Substance: ATROPINE
  14. LORAZEPAM [Concomitant]
     Active Substance: LORAZEPAM
     Route: 048
  15. SULFAMETHOXAZOLE [Concomitant]
     Active Substance: SULFAMETHOXAZOLE
     Dosage: 2 TIMES PER WEEK
     Route: 048
  16. TRIMETHOPRIM [Concomitant]
     Active Substance: TRIMETHOPRIM
     Route: 048

REACTIONS (1)
  - Asthenia [Not Recovered/Not Resolved]

NARRATIVE: CASE EVENT DATE: 20230130
